FAERS Safety Report 6497930-6 (Version None)
Quarter: 2009Q4

REPORT INFORMATION
  Report Type: 
  Country: None (occurrence: None)
  Receive Date: 20091215
  Receipt Date: 20091209
  Transmission Date: 20100525
  Serious: Yes (Death, Hospitalization)
  Sender: FDA-Public Use
  Company Number: BR-ROCHE-668329

PATIENT
  Sex: Male

DRUGS (2)
  1. CAPECITABINE [Suspect]
     Route: 048
  2. BERLISON [Suspect]
     Indication: PROPHYLAXIS
     Route: 061
     Dates: start: 20090925

REACTIONS (1)
  - ANAEMIA [None]
